FAERS Safety Report 6346994-9 (Version None)
Quarter: 2009Q3

REPORT INFORMATION
  Report Type: 
  Country: None (occurrence: None)
  Receive Date: 20090908
  Receipt Date: 20090908
  Transmission Date: 20100115
  Serious: Yes (Other)
  Sender: FDA-Public Use
  Company Number: None

PATIENT
  Age: 54 Year
  Sex: Female
  Weight: 53.5244 kg

DRUGS (1)
  1. CIPROFLOXACIN [Suspect]
     Indication: KIDNEY INFECTION
     Dosage: 500 MG 2X DAILY PO
     Route: 048
     Dates: start: 20090812, end: 20090819

REACTIONS (5)
  - DYSURIA [None]
  - RASH ERYTHEMATOUS [None]
  - RASH GENERALISED [None]
  - SCAB [None]
  - VULVOVAGINAL MYCOTIC INFECTION [None]
